FAERS Safety Report 7113416-X (Version None)
Quarter: 2010Q4

REPORT INFORMATION
  Report Type: 
  Country: None (occurrence: None)
  Receive Date: 20101119
  Receipt Date: 20100916
  Transmission Date: 20110411
  Serious: No
  Sender: FDA-Public Use
  Company Number: A0881476A

PATIENT
  Age: 61 Year
  Sex: Female

DRUGS (3)
  1. ARZERRA [Suspect]
     Dosage: 2000MG WEEKLY
     Route: 042
     Dates: start: 20100701
  2. ACYCLOVIR [Concomitant]
  3. AMBIEN [Concomitant]

REACTIONS (4)
  - DYSPNOEA [None]
  - FATIGUE [None]
  - NEUROPATHY PERIPHERAL [None]
  - PARAESTHESIA ORAL [None]
